FAERS Safety Report 4747114-4 (Version None)
Quarter: 2005Q3

REPORT INFORMATION
  Report Type: 
  Country: None (occurrence: None)
  Receive Date: 20050815
  Receipt Date: 20050802
  Transmission Date: 20060218
  Serious: Yes (Other)
  Sender: FDA-Public Use
  Company Number: USA050188786

PATIENT
  Age: 25 Year
  Sex: Female

DRUGS (2)
  1. SYMBYAK-OLANZAPINE 6MG / FLUOXETINE 25 MG (OLANZAPIN [Suspect]
     Indication: BIPOLAR DISORDER
  2. LEXAPRO [Concomitant]

REACTIONS (1)
  - SYNCOPE [None]
